FAERS Safety Report 20015716 (Version 1)
Quarter: 2021Q4

REPORT INFORMATION
  Report Type: Spontaneous
  Country: US (occurrence: None)
  Receive Date: 20211101
  Receipt Date: 20211101
  Transmission Date: 20220303
  Serious: Yes (Hospitalization)
  Sender: FDA-Public Use
  Company Number: None

PATIENT
  Age: 63 Year
  Sex: Male
  Weight: 107 kg

DRUGS (3)
  1. MORPHINE [Suspect]
     Active Substance: MORPHINE
     Indication: Pain in extremity
     Dosage: OTHER FREQUENCY : ONCE;?
     Route: 042
     Dates: start: 20211013, end: 20211013
  2. ONDANSETRON [Concomitant]
     Active Substance: ONDANSETRON
     Dates: start: 20211013, end: 20211013
  3. CEFTRIAXONE [Concomitant]
     Active Substance: CEFTRIAXONE
     Dates: start: 20211013, end: 20211020

REACTIONS (5)
  - Hypercapnia [None]
  - Lethargy [None]
  - Confusional state [None]
  - Positive airway pressure therapy [None]
  - Drug hypersensitivity [None]

NARRATIVE: CASE EVENT DATE: 20211013
